FAERS Safety Report 16906279 (Version 1)
Quarter: 2019Q4

REPORT INFORMATION
  Report Type: Spontaneous
  Country: US (occurrence: US)
  Receive Date: 20191011
  Receipt Date: 20191011
  Transmission Date: 20200122
  Serious: No
  Sender: FDA-Public Use
  Company Number: US-JNJFOC-20190932774

PATIENT
  Sex: Female
  Weight: 45.4 kg

DRUGS (1)
  1. WOMENS ROGAINE UNSCENTED [Suspect]
     Active Substance: MINOXIDIL
     Indication: ALOPECIA
     Dosage: FULL CAPFULL ONCE
     Route: 061
     Dates: start: 20190821, end: 20190923

REACTIONS (2)
  - Alopecia [Unknown]
  - Overdose [Unknown]

NARRATIVE: CASE EVENT DATE: 20190917
